APPROVED DRUG PRODUCT: VOCABRIA
Active Ingredient: CABOTEGRAVIR SODIUM
Strength: EQ 30MG BASE
Dosage Form/Route: TABLET;ORAL
Application: N212887 | Product #001
Applicant: VIIV HEALTHCARE CO
Approved: Jan 21, 2021 | RLD: Yes | RS: Yes | Type: RX

PATENTS:
Patent 8410103 | Expires: Feb 4, 2031
Patent 10927129 | Expires: Apr 28, 2026

EXCLUSIVITY:
Code: NCE | Date: Jan 21, 2026